FAERS Safety Report 6806502-2 (Version None)
Quarter: 2010Q2

REPORT INFORMATION
  Report Type: 
  Country: None (occurrence: None)
  Receive Date: 20100629
  Receipt Date: 20080402
  Transmission Date: 20101027
  Serious: No
  Sender: FDA-Public Use
  Company Number: US-PFIZER INC-2008026562

PATIENT
  Sex: Male
  Weight: 85.73 kg

DRUGS (9)
  1. TIKOSYN [Suspect]
     Indication: HEART RATE IRREGULAR
     Route: 048
     Dates: start: 20070201
  2. TIKOSYN [Suspect]
     Indication: CARDIAC PACEMAKER INSERTION
  3. NORVASC [Suspect]
     Indication: HYPERTENSION
     Dates: start: 20080101
  4. COZAAR [Concomitant]
  5. ACTOS [Concomitant]
     Indication: BLOOD GLUCOSE INCREASED
  6. HYDRALAZINE HCL [Concomitant]
     Indication: HYPERTENSION
  7. WARFARIN SODIUM [Concomitant]
  8. AZULFIDINE [Concomitant]
     Indication: ARTHRITIS
  9. LASIX [Concomitant]

REACTIONS (3)
  - ANXIETY [None]
  - JOINT SWELLING [None]
  - RESPIRATORY TRACT INFECTION [None]
